FAERS Safety Report 23770503 (Version 1)
Quarter: 2024Q2

REPORT INFORMATION
  Report Type: Spontaneous
  Country: AR (occurrence: AU)
  Receive Date: 20240422
  Receipt Date: 20240422
  Transmission Date: 20240716
  Serious: No
  Sender: FDA-Public Use
  Company Number: AU-WT-2024-AU-032174

PATIENT
  Sex: Male

DRUGS (2)
  1. AVODART [Suspect]
     Active Substance: DUTASTERIDE
     Route: 065
     Dates: start: 20240311
  2. DUTASTERIDE\TAMSULOSIN [Suspect]
     Active Substance: DUTASTERIDE\TAMSULOSIN
     Route: 065
     Dates: start: 20240309, end: 20240310

REACTIONS (7)
  - Blood pressure increased [Unknown]
  - Withdrawal syndrome [Unknown]
  - Loss of personal independence in daily activities [Unknown]
  - Feeling abnormal [Unknown]
  - Patient dissatisfaction with treatment [Unknown]
  - Dizziness [Unknown]
  - Micturition urgency [Unknown]
